FAERS Safety Report 8113030-3 (Version None)
Quarter: 2012Q1

REPORT INFORMATION
  Report Type: 
  Country: None (occurrence: None)
  Receive Date: 20120203
  Receipt Date: 20120202
  Transmission Date: 20120608
  Serious: Yes (Death, Hospitalization)
  Sender: FDA-Public Use
  Company Number: US-GLAXOSMITHKLINE-A0875916A

PATIENT
  Age: 76 Year
  Sex: Male

DRUGS (11)
  1. AVANDIA [Suspect]
     Indication: DIABETES MELLITUS
     Dosage: 4MG PER DAY
     Route: 048
     Dates: start: 20040514, end: 20071108
  2. TOPROL-XL [Concomitant]
  3. AMBIEN [Concomitant]
  4. AVAPRO [Concomitant]
  5. PRAVACHOL [Concomitant]
  6. COUMADIN [Concomitant]
  7. ZETIA [Concomitant]
  8. PREDNISONE TAB [Concomitant]
  9. HYDROCHLOROTHIAZIDE [Concomitant]
  10. GLIPIZIDE [Concomitant]
  11. ALLEGRA [Concomitant]

REACTIONS (4)
  - RENAL FAILURE CHRONIC [None]
  - MYOCARDIAL INFARCTION [None]
  - CARDIAC FAILURE CONGESTIVE [None]
  - CORONARY ARTERY DISEASE [None]
